FAERS Safety Report 4893787-5 (Version None)
Quarter: 2005Q4

REPORT INFORMATION
  Report Type: 
  Country: None (occurrence: None)
  Receive Date: 20051223
  Receipt Date: 20051130
  Transmission Date: 20060501
  Serious: No
  Sender: FDA-Public Use
  Company Number: 2005PV005099

PATIENT
  Age: 51 Year
  Sex: Female
  Weight: 89.8122 kg

DRUGS (3)
  1. SYMLIN [Suspect]
     Indication: DIABETES MELLITUS NON-INSULIN-DEPENDENT
     Dosage: 120 MCG;TID;SC; SEE IMAGE
     Route: 058
     Dates: start: 20051115, end: 20051126
  2. SYMLIN [Suspect]
     Indication: DIABETES MELLITUS NON-INSULIN-DEPENDENT
     Dosage: 120 MCG;TID;SC; SEE IMAGE
     Route: 058
     Dates: start: 20051127
  3. NOVOLOG MIX 70/30 [Concomitant]

REACTIONS (3)
  - INJECTION SITE ERYTHEMA [None]
  - INJECTION SITE RASH [None]
  - RASH MACULO-PAPULAR [None]
